FAERS Safety Report 7965422-0 (Version None)
Quarter: 2011Q4

REPORT INFORMATION
  Report Type: 
  Country: None (occurrence: None)
  Receive Date: 20111208
  Receipt Date: 20111130
  Transmission Date: 20120403
  Serious: Yes (Hospitalization)
  Sender: FDA-Public Use
  Company Number: FR-B.I. PHARMACEUTICALS,INC./RIDGEFIELD-2011-FF-01125FF

PATIENT
  Sex: Female

DRUGS (9)
  1. ZOPICLONE [Concomitant]
  2. MODOPAR [Concomitant]
     Dosage: 375 NR
  3. LEVOTHYROXINE SODIUM [Concomitant]
     Dosage: 75 NR
  4. MICARDIS HCT [Suspect]
     Indication: HYPERTENSION
     Dosage: 40 MG/12.5 MG
     Route: 048
  5. GASVISCON [Concomitant]
  6. UTEPLEX [Concomitant]
  7. EQUANIL [Concomitant]
  8. ARICEPT [Concomitant]
     Dosage: 10 NR
  9. ENDOTELON [Concomitant]
     Dosage: 300 NR

REACTIONS (5)
  - HYPONATRAEMIA [None]
  - DEHYDRATION [None]
  - NAUSEA [None]
  - ESCHERICHIA URINARY TRACT INFECTION [None]
  - MALAISE [None]
